FAERS Safety Report 15163506 (Version 3)
Quarter: 2018Q4

REPORT INFORMATION
  Report Type: Report from Study
  Country: JP (occurrence: JP)
  Receive Date: 20180719
  Receipt Date: 20181008
  Transmission Date: 20190204
  Serious: No
  Sender: FDA-Public Use
  Company Number: JP-UCBSA-2018031215

PATIENT
  Age: 21 Year
  Sex: Male
  Weight: 58 kg

DRUGS (3)
  1. LACOSAMIDE. [Suspect]
     Active Substance: LACOSAMIDE
     Indication: FOCAL DYSCOGNITIVE SEIZURES
     Dosage: 50 MG, 2X/DAY (BID)
     Route: 048
     Dates: start: 20171017, end: 20171130
  2. LENDORMIN [Concomitant]
     Active Substance: BROTIZOLAM
     Indication: PRODUCT USED FOR UNKNOWN INDICATION
     Dosage: 0.25 MG DAILY
     Route: 048
  3. DEPAKENE [Concomitant]
     Active Substance: VALPROIC ACID
     Indication: FOCAL DYSCOGNITIVE SEIZURES
     Dosage: 400 MG DAILY
     Route: 048

REACTIONS (1)
  - Dizziness [Recovering/Resolving]

NARRATIVE: CASE EVENT DATE: 20171119
